FAERS Safety Report 20820197 (Version 1)
Quarter: 2022Q2

REPORT INFORMATION
  Report Type: Spontaneous
  Country: US (occurrence: None)
  Receive Date: 20220512
  Receipt Date: 20220512
  Transmission Date: 20220720
  Serious: Yes (Hospitalization)
  Sender: FDA-Public Use
  Company Number: None

PATIENT
  Age: 69 Year
  Sex: Male
  Weight: 141 kg

DRUGS (2)
  1. WARFARIN SODIUM [Suspect]
     Active Substance: WARFARIN SODIUM
     Indication: Deep vein thrombosis
     Dates: start: 20090707
  2. ASPIRIN [Suspect]
     Active Substance: ASPIRIN
     Dates: start: 20090707, end: 20200418

REACTIONS (6)
  - Haematemesis [None]
  - Melaena [None]
  - Anastomotic ulcer [None]
  - Jejunal ulcer [None]
  - Haemorrhage [None]
  - Gastric haemorrhage [None]

NARRATIVE: CASE EVENT DATE: 20200411
